FAERS Safety Report 5647331-5 (Version None)
Quarter: 2008Q1

REPORT INFORMATION
  Report Type: 
  Country: None (occurrence: None)
  Receive Date: 20080303
  Receipt Date: 20080227
  Transmission Date: 20080703
  Serious: Yes (Hospitalization)
  Sender: FDA-Public Use
  Company Number: US-BRISTOL-MYERS SQUIBB COMPANY-14093967

PATIENT
  Age: 63 Year
  Sex: Female
  Weight: 72 kg

DRUGS (4)
  1. CETUXIMAB [Suspect]
     Indication: COLON CANCER
     Dosage: CYCLE 1 STARTED ON 08-OCT-2007 :400 MG/M2 DAY1, 250MG/M2 DAY 8; CYCLE 2: 250 MG/M2 DAY 1 AND 8
     Route: 042
     Dates: start: 20071119, end: 20071119
  2. LEUCOVORIN CALCIUM [Suspect]
     Indication: COLON CANCER
     Dosage: CYCLE 1 STARTED 08-OCT-2007 400 MG/M2 DAY1;  CYCLE 2: 400 MG/M2 DAY1
     Route: 042
     Dates: start: 20071112, end: 20071112
  3. OXALIPLATIN [Suspect]
     Indication: COLON CANCER
     Dosage: CYCLE STARTED ON 08-OCT-2007: 85 MG/M2 DAY1; CYCLE 2: 85 MG/M2 DAY1
     Route: 042
     Dates: start: 20071112, end: 20071112
  4. FLUOROURACIL [Suspect]
     Indication: COLON CANCER
     Dosage: START DATE 08OCT07(CYCLE 1):400 MG/M2 D1 FOLLOWED BY 2400 MG/M2 CIV,46-48 H, SAME DOSE IN CYCLE 2
     Route: 042
     Dates: start: 20071112, end: 20071112

REACTIONS (2)
  - ABDOMINAL PAIN [None]
  - LARGE INTESTINE PERFORATION [None]
